FAERS Safety Report 10076703 (Version 3)
Quarter: 2014Q2

REPORT INFORMATION
  Report Type: Spontaneous
  Country: US (occurrence: US)
  Receive Date: 20140414
  Receipt Date: 20140612
  Transmission Date: 20141212
  Serious: Yes (Hospitalization, Other)
  Sender: FDA-Public Use
  Company Number: US-PFIZER INC-2014102449

PATIENT
  Age: 72 Year
  Sex: Female

DRUGS (7)
  1. TORISEL [Suspect]
     Indication: METASTATIC RENAL CELL CARCINOMA
     Dosage: 25 MG, WEEKLY
     Route: 042
     Dates: start: 20140113, end: 20140401
  2. LIPITOR [Concomitant]
     Dosage: 1 DF, DAILY
     Route: 048
  3. FENOFIBRATE [Concomitant]
     Dosage: 145 MG, DAILY
     Route: 048
     Dates: start: 20090429
  4. DIPHENHYDRAMINE HCL [Concomitant]
     Dosage: UNK
     Dates: start: 20090216
  5. SODIUM CHLORIDE [Concomitant]
     Dosage: UNK
     Dates: start: 20090216
  6. GLIPIZIDE [Concomitant]
     Dosage: 10 MG, DAILY
  7. MIRAPEX [Concomitant]
     Dosage: 0.5 MG, SIX TIMES A DAY

REACTIONS (2)
  - Hypertriglyceridaemia [Recovering/Resolving]
  - Diabetes mellitus [Unknown]
